FAERS Safety Report 13474318 (Version 3)
Quarter: 2017Q2

REPORT INFORMATION
  Report Type: Spontaneous
  Country: US (occurrence: US)
  Receive Date: 20170424
  Receipt Date: 20170621
  Transmission Date: 20170830
  Serious: Yes (Other)
  Sender: FDA-Public Use
  Company Number: US-PFIZER INC-2017177516

PATIENT
  Age: 83 Year
  Sex: Female
  Weight: 56.25 kg

DRUGS (7)
  1. MULTIVITAMIN /00097801/ [Concomitant]
     Active Substance: VITAMINS
  2. RHODIOLA ROSEA [Concomitant]
     Active Substance: HERBALS
     Dosage: UNK
  3. GABAPENTIN. [Suspect]
     Active Substance: GABAPENTIN
     Indication: SLEEP DISORDER
     Dosage: 150 MG, 1X/DAY
     Dates: start: 20170324
  4. GABAPENTIN. [Suspect]
     Active Substance: GABAPENTIN
     Dosage: 300 MG, 1X/DAY (AT NIGHT)
     Route: 048
     Dates: start: 20170327, end: 20170329
  5. MELATONIN [Concomitant]
     Active Substance: MELATONIN
     Indication: SLEEP DISORDER
     Dosage: 10 MG, UNK
     Dates: start: 20170324
  6. 5 HTP [Concomitant]
     Indication: INSOMNIA
     Dosage: UNK
  7. VITAMINS /00067501/ [Concomitant]
     Active Substance: VITAMINS

REACTIONS (4)
  - Suicidal ideation [Recovered/Resolved]
  - Product use in unapproved indication [Recovered/Resolved]
  - Depression [Recovered/Resolved]
  - Crying [Recovered/Resolved]

NARRATIVE: CASE EVENT DATE: 201703
